FAERS Safety Report 8044110-9 (Version None)
Quarter: 2012Q1

REPORT INFORMATION
  Report Type: 
  Country: None (occurrence: None)
  Receive Date: 20120113
  Receipt Date: 20120106
  Transmission Date: 20120608
  Serious: Yes (Hospitalization)
  Sender: FDA-Public Use
  Company Number: US-BAYER-2011-075420

PATIENT
  Age: 37 Year
  Sex: Female
  Weight: 58.957 kg

DRUGS (3)
  1. PHENOBARBITAL TAB [Concomitant]
     Indication: CONVULSION
     Dosage: UNK
     Dates: start: 20010101, end: 20110101
  2. YAZ [Suspect]
     Indication: CONTRACEPTION
     Dosage: UNK
     Dates: start: 20040101, end: 20060101
  3. YASMIN [Suspect]
     Indication: CONTRACEPTION
     Dosage: UNK
     Dates: start: 20040101, end: 20060101

REACTIONS (3)
  - PAIN [None]
  - INJURY [None]
  - GALLBLADDER INJURY [None]
